FAERS Safety Report 7504310-0 (Version None)
Quarter: 2011Q2

REPORT INFORMATION
  Report Type: 
  Country: None (occurrence: None)
  Receive Date: 20110525
  Receipt Date: 20110519
  Transmission Date: 20111010
  Serious: Yes (Life-Threatening, Hospitalization, Other)
  Sender: FDA-Public Use
  Company Number: CA-US-EMD SERONO, INC.-7060774

PATIENT
  Sex: Female

DRUGS (4)
  1. DIURETIC [Concomitant]
  2. ANTIDEPRESSANTS [Concomitant]
  3. MUSCLE RELAXANT [Concomitant]
  4. REBIF [Suspect]
     Indication: RELAPSING-REMITTING MULTIPLE SCLEROSIS
     Dates: start: 20050317

REACTIONS (5)
  - WEIGHT INCREASED [None]
  - CARDIAC ARREST [None]
  - ARRHYTHMIA [None]
  - PAIN [None]
  - CEREBROVASCULAR ACCIDENT [None]
